FAERS Safety Report 17045499 (Version 1)
Quarter: 2019Q4

REPORT INFORMATION
  Report Type: Other
  Country: US (occurrence: US)
  Receive Date: 20191118
  Receipt Date: 20191118
  Transmission Date: 20200122
  Serious: No
  Sender: FDA-Public Use
  Company Number: US-LEADIANT BIOSCIENCES INC-2019STPI000035

PATIENT

DRUGS (6)
  1. VITAMIN D NOS [Concomitant]
     Active Substance: VITAMIN D NOS
     Dosage: 50000 UNITS
     Route: 048
     Dates: start: 20161126
  2. K-PHOS [Concomitant]
     Active Substance: POTASSIUM PHOSPHATE, MONOBASIC
     Dosage: UNK
     Dates: start: 20131215
  3. CARNITINE [Concomitant]
     Active Substance: CARNITINE
     Dosage: 250 MILLIGRAM
     Route: 048
     Dates: start: 20160810
  4. POTASSIUM CITRATE. [Concomitant]
     Active Substance: POTASSIUM CITRATE
     Dosage: UNK
     Dates: start: 20160713
  5. PROCYSBI [Concomitant]
     Active Substance: CYSTEAMINE BITARTRATE
     Dosage: 75 MILLIGRAM
     Dates: start: 20131215
  6. CYSTARAN [Suspect]
     Active Substance: CYSTEAMINE HYDROCHLORIDE
     Indication: CYSTINOSIS
     Dosage: 15 MILLILITER, QD AS DIRECTED
     Dates: start: 20140812

REACTIONS (2)
  - Ocular hyperaemia [Not Recovered/Not Resolved]
  - Product dose omission [Not Recovered/Not Resolved]
